FAERS Safety Report 20902266 (Version 1)
Quarter: 2022Q2

REPORT INFORMATION
  Report Type: Spontaneous
  Country: US (occurrence: None)
  Receive Date: 20220601
  Receipt Date: 20220601
  Transmission Date: 20220721
  Serious: Yes (unspecified)
  Sender: FDA-Public Use
  Company Number: None

PATIENT
  Age: 38 Year
  Sex: Female
  Weight: 86.2 kg

DRUGS (1)
  1. PAXLOVID [Suspect]
     Active Substance: NIRMATRELVIR\RITONAVIR
     Indication: COVID-19
     Dates: start: 20220528

REACTIONS (4)
  - Exposure during pregnancy [None]
  - Product dispensing error [None]
  - Product label on wrong product [None]
  - Intercepted product administration error [None]

NARRATIVE: CASE EVENT DATE: 20220528
